FAERS Safety Report 7259481-0 (Version None)
Quarter: 2011Q1

REPORT INFORMATION
  Report Type: 
  Country: None (occurrence: None)
  Receive Date: 20110129
  Receipt Date: 20101025
  Transmission Date: 20110831
  Serious: No
  Sender: FDA-Public Use
  Company Number: US-MYLANLABS-2010S1018064

PATIENT
  Age: 46 Year
  Sex: Female

DRUGS (8)
  1. LAMICTAL [Suspect]
     Indication: EPILEPSY
  2. HYDROXIZINE [Concomitant]
  3. VESICARE [Concomitant]
     Indication: HYPERTONIC BLADDER
  4. DOCUSATE [Concomitant]
  5. IBUPROFEN [Concomitant]
  6. LAMOTRIGINE [Suspect]
     Indication: EPILEPSY
     Route: 048
     Dates: start: 20100810, end: 20101001
  7. PROPRANOLOL [Concomitant]
     Indication: TACHYCARDIA
  8. VALIUM [Concomitant]
     Indication: CONVULSION
     Dosage: ALSO FOR ANXIETY

REACTIONS (6)
  - VISION BLURRED [None]
  - DIZZINESS [None]
  - FALL [None]
  - THROAT IRRITATION [None]
  - GAIT DISTURBANCE [None]
  - NERVE INJURY [None]
